FAERS Safety Report 8353688-7 (Version None)
Quarter: 2012Q2

REPORT INFORMATION
  Report Type: 
  Country: None (occurrence: None)
  Receive Date: 20120509
  Receipt Date: 20120507
  Transmission Date: 20120825
  Serious: Yes (Hospitalization, Other)
  Sender: FDA-Public Use
  Company Number: 2011SP019412

PATIENT
  Age: 36 Year
  Sex: Female
  Weight: 77.1115 kg

DRUGS (4)
  1. SYNTHROID [Concomitant]
  2. NUVARING [Suspect]
     Indication: INFERTILITY
     Dates: start: 20090801, end: 20100228
  3. NUVARING [Suspect]
     Indication: MENSTRUAL CYCLE MANAGEMENT
     Dates: start: 20090801, end: 20100228
  4. NUVARING [Suspect]
     Indication: ENDOMETRIOSIS
     Dates: start: 20090801, end: 20100228

REACTIONS (14)
  - THROMBOTIC CEREBRAL INFARCTION [None]
  - BLOOD CHOLESTEROL INCREASED [None]
  - LOW DENSITY LIPOPROTEIN INCREASED [None]
  - PARTIAL SEIZURES [None]
  - POST STROKE DEPRESSION [None]
  - AMNESIA [None]
  - BLOOD THYROID STIMULATING HORMONE INCREASED [None]
  - BACTERIURIA [None]
  - PULMONARY EMBOLISM [None]
  - IMPAIRED WORK ABILITY [None]
  - HEART RATE INCREASED [None]
  - EPILEPSY [None]
  - DEAFNESS [None]
  - HYPERLIPIDAEMIA [None]
